FAERS Safety Report 24760374 (Version 1)
Quarter: 2024Q4

REPORT INFORMATION
  Report Type: Spontaneous
  Country: US (occurrence: None)
  Receive Date: 20241219
  Receipt Date: 20241219
  Transmission Date: 20250114
  Serious: Yes (Death)
  Sender: Public
  Company Number: None

PATIENT
  Age: 75 Year
  Sex: Male
  Weight: 114 kg

DRUGS (1)
  1. CARVYKTI [Suspect]
     Active Substance: CILTACABTAGENE AUTOLEUCEL
     Indication: Plasma cell myeloma
     Dates: start: 20241118, end: 20241118

REACTIONS (13)
  - Cytokine release syndrome [None]
  - Neurotoxicity [None]
  - Acute respiratory failure [None]
  - Atelectasis [None]
  - Cardiomegaly [None]
  - Oxygen consumption increased [None]
  - Dyspnoea [None]
  - Phrenic nerve paralysis [None]
  - Cardiac failure congestive [None]
  - Pulmonary oedema [None]
  - Peripheral sensory neuropathy [None]
  - Pneumonia [None]
  - General physical health deterioration [None]

NARRATIVE: CASE EVENT DATE: 20241215
